FAERS Safety Report 9685357 (Version 4)
Quarter: 2016Q3

REPORT INFORMATION
  Report Type: Report from Study
  Country: BR (occurrence: BR)
  Receive Date: 20131113
  Receipt Date: 20160830
  Transmission Date: 20161109
  Serious: Yes (Hospitalization, Other)
  Sender: FDA-Public Use
  Company Number: PHHY2013BR128103

PATIENT
  Age: 54 Year
  Sex: Female
  Weight: 63 kg

DRUGS (10)
  1. TOPIRAMATE. [Concomitant]
     Active Substance: TOPIRAMATE
     Indication: HEADACHE
  2. MORPHINE [Concomitant]
     Active Substance: MORPHINE
     Indication: BONE PAIN
     Dosage: 1 DF, BID
     Route: 065
     Dates: start: 2011
  3. OMEPRAZOLE. [Concomitant]
     Active Substance: OMEPRAZOLE
     Indication: GASTROINTESTINAL DISORDER
     Dosage: 1 DF, BID (1 IN THE MORNING, 1 IN THE AFTERNOON)
     Route: 065
  4. PURAN [Concomitant]
     Active Substance: LEVOTHYROXINE SODIUM
     Indication: THYROID DISORDER
     Dosage: 1 DF, QD
     Route: 065
  5. ZOLPIDEM TARTRATE. [Concomitant]
     Active Substance: ZOLPIDEM TARTRATE
     Indication: SLEEP DISORDER
     Dosage: 1 DF, QD
     Route: 065
  6. TOPIRAMATE. [Concomitant]
     Active Substance: TOPIRAMATE
     Indication: PAIN
     Dosage: 1 DF, QD
     Route: 065
  7. FLUOXETINE [Concomitant]
     Active Substance: FLUOXETINE HYDROCHLORIDE
     Indication: DEPRESSION
     Dosage: 2 DF, QD
     Route: 065
  8. SANDOSTATIN LAR DEPOT [Suspect]
     Active Substance: OCTREOTIDE ACETATE
     Indication: ACROMEGALY
     Dosage: 30 MG, QMO
     Route: 065
  9. MORPHINE [Concomitant]
     Active Substance: MORPHINE
     Dosage: 1 DF, BID (1 IN THE MORNING, 1 AT NIGHT)
     Route: 065
  10. GABAPENTINE [Concomitant]
     Active Substance: GABAPENTIN
     Indication: HYPOAESTHESIA
     Route: 065

REACTIONS (30)
  - Bone cancer [Unknown]
  - Metastases to spine [Unknown]
  - Incorrect product storage [Unknown]
  - Malaise [Recovering/Resolving]
  - Decreased immune responsiveness [Recovering/Resolving]
  - Pulse abnormal [Recovering/Resolving]
  - Memory impairment [Recovering/Resolving]
  - Anaemia [Recovering/Resolving]
  - Malignant neoplasm progression [Not Recovered/Not Resolved]
  - Dermatitis diaper [Unknown]
  - Nausea [Not Recovered/Not Resolved]
  - Gait disturbance [Recovering/Resolving]
  - Kidney infection [Recovering/Resolving]
  - Asthenia [Recovering/Resolving]
  - Metastases to thorax [Unknown]
  - Pyrexia [Recovering/Resolving]
  - Intervertebral disc protrusion [Not Recovered/Not Resolved]
  - Pain in extremity [Recovering/Resolving]
  - Apnoea [Recovering/Resolving]
  - Aphasia [Recovering/Resolving]
  - Urinary tract infection [Recovering/Resolving]
  - Renal abscess [Unknown]
  - Metastases to breast [Unknown]
  - Back pain [Not Recovered/Not Resolved]
  - Exostosis [Not Recovered/Not Resolved]
  - Muscular weakness [Recovering/Resolving]
  - Osteoarthritis [Not Recovered/Not Resolved]
  - Disorientation [Recovering/Resolving]
  - Feeling abnormal [Recovering/Resolving]
  - Cognitive disorder [Unknown]

NARRATIVE: CASE EVENT DATE: 2010
